FAERS Safety Report 6480979-7 (Version None)
Quarter: 2009Q4

REPORT INFORMATION
  Report Type: 
  Country: None (occurrence: None)
  Receive Date: 20091208
  Receipt Date: 20091202
  Transmission Date: 20100525
  Serious: Yes (Hospitalization, Other)
  Sender: FDA-Public Use
  Company Number: US-AMGEN-KDL378103

PATIENT
  Sex: Female
  Weight: 87.2 kg

DRUGS (9)
  1. PROCRIT [Suspect]
     Indication: RENAL FAILURE CHRONIC
     Route: 058
     Dates: start: 20070101
  2. COREG [Concomitant]
     Dates: start: 20090601
  3. COUMADIN [Concomitant]
  4. DEMADEX [Concomitant]
  5. TRICOR [Concomitant]
  6. ZOCOR [Concomitant]
  7. NEXIUM [Concomitant]
  8. UNSPECIFIED MEDICATION [Concomitant]
     Dates: start: 20091124
  9. VITAMIN B-12 [Concomitant]

REACTIONS (5)
  - DIARRHOEA [None]
  - DYSPNOEA [None]
  - HOSPITALISATION [None]
  - HYPERTENSION [None]
  - NAUSEA [None]
